FAERS Safety Report 16231406 (Version 1)
Quarter: 2019Q2

REPORT INFORMATION
  Report Type: Report from Study
  Country: None (occurrence: FR)
  Receive Date: 20190424
  Receipt Date: 20190424
  Transmission Date: 20190711
  Serious: Yes (Other)
  Sender: FDA-Public Use
  Company Number: FR-ABBVIE-19K-056-2752972-00

PATIENT
  Sex: Male
  Weight: 72 kg

DRUGS (10)
  1. COSENTYX [Concomitant]
     Active Substance: SECUKINUMAB
     Dates: start: 20170616
  2. HUMIRA [Suspect]
     Active Substance: ADALIMUMAB
     Route: 058
     Dates: start: 20160222, end: 20170519
  3. DAIVOBET [Concomitant]
     Active Substance: BETAMETHASONE DIPROPIONATE\CALCIPOTRIENE
     Indication: PRODUCT USED FOR UNKNOWN INDICATION
  4. SEROPRAM [Concomitant]
     Indication: PRODUCT USED FOR UNKNOWN INDICATION
     Dates: start: 1996
  5. COSENTYX [Concomitant]
     Active Substance: SECUKINUMAB
     Indication: PSORIASIS
     Route: 058
     Dates: start: 20170519, end: 20170616
  6. CLARELUX [Concomitant]
     Active Substance: CLOBETASOL PROPIONATE
     Indication: PRODUCT USED FOR UNKNOWN INDICATION
  7. SEROPRAM [Concomitant]
     Dates: start: 20180315
  8. PROTOPIC [Concomitant]
     Active Substance: TACROLIMUS
     Indication: PRODUCT USED FOR UNKNOWN INDICATION
     Dosage: 0.1 %
     Dates: start: 20170113
  9. HUMIRA [Suspect]
     Active Substance: ADALIMUMAB
     Indication: PSORIASIS
     Route: 058
     Dates: start: 20160215, end: 20160222
  10. DEXERYL (GLYCEROL AND WHITE SOFT PARAFFIN AND LIQUID PARAFFIN) [Concomitant]
     Active Substance: GLYCERIN\MINERAL OIL\PETROLATUM
     Indication: PRODUCT USED FOR UNKNOWN INDICATION
     Dates: start: 20160215

REACTIONS (1)
  - Prostate cancer [Not Recovered/Not Resolved]

NARRATIVE: CASE EVENT DATE: 20190108
